FAERS Safety Report 14188215 (Version 2)
Quarter: 2017Q4

REPORT INFORMATION
  Report Type: Report from Study
  Country: IT (occurrence: IT)
  Receive Date: 20171114
  Receipt Date: 20171120
  Transmission Date: 20180321
  Serious: Yes (Death, Hospitalization, Other)
  Sender: FDA-Public Use
  Company Number: IT-BRISTOL-MYERS SQUIBB COMPANY-BMS-2017-080042

PATIENT
  Age: 71 Year
  Sex: Male
  Weight: 85 kg

DRUGS (2)
  1. METHYLPREDNISOLONE. [Concomitant]
     Active Substance: METHYLPREDNISOLONE
     Indication: AUTOIMMUNE HEPATITIS
     Dosage: 3 MG/KG, QD
     Route: 042
     Dates: start: 20170923
  2. NIVOLUMAB [Suspect]
     Active Substance: NIVOLUMAB
     Indication: MALIGNANT MELANOMA
     Dosage: 255 MG, UNK
     Route: 042
     Dates: start: 20151028

REACTIONS (2)
  - Respiratory failure [Unknown]
  - Autoimmune hepatitis [Fatal]

NARRATIVE: CASE EVENT DATE: 20170828
